FAERS Safety Report 9020926 (Version 1)
Quarter: 2013Q1

REPORT INFORMATION
  Report Type: Spontaneous
  Country: US (occurrence: US)
  Receive Date: 20130119
  Receipt Date: 20130119
  Transmission Date: 20140127
  Serious: No
  Sender: FDA-Public Use
  Company Number: US-ALLERGAN-1205195US

PATIENT
  Age: 9 Year
  Sex: 0
  Weight: 28 kg

DRUGS (3)
  1. BOTOX? [Suspect]
     Indication: MUSCLE SPASTICITY
     Dosage: 300 UNITS, SINGLE
     Route: 030
     Dates: start: 20120304, end: 20120304
  2. BOTOX? [Suspect]
     Dosage: 100 UNITS, SINGLE
     Route: 030
     Dates: start: 20120304, end: 20120304
  3. BOTOX? [Suspect]
     Dosage: UNK
     Dates: start: 2011, end: 2011

REACTIONS (4)
  - Muscular weakness [Not Recovered/Not Resolved]
  - Muscular weakness [Not Recovered/Not Resolved]
  - Muscular weakness [Not Recovered/Not Resolved]
  - Asthenia [Not Recovered/Not Resolved]
